FAERS Safety Report 4846655-9 (Version None)
Quarter: 2005Q4

REPORT INFORMATION
  Report Type: 
  Country: None (occurrence: None)
  Receive Date: 20051201
  Receipt Date: 20051115
  Transmission Date: 20060501
  Serious: Yes (Other)
  Sender: FDA-Public Use
  Company Number: US158935

PATIENT

DRUGS (2)
  1. ETANERCEPT (ETANERCEPT) [Suspect]
     Indication: JUVENILE ARTHRITIS
  2. METHOTREXATE [Suspect]

REACTIONS (3)
  - IMPETIGO [None]
  - UPPER RESPIRATORY TRACT INFECTION [None]
  - VARICELLA [None]
